FAERS Safety Report 14551667 (Version 1)
Quarter: 2018Q1

REPORT INFORMATION
  Report Type: Spontaneous
  Country: US (occurrence: US)
  Receive Date: 20180220
  Receipt Date: 20180220
  Transmission Date: 20180509
  Serious: No
  Sender: FDA-Public Use
  Company Number: US-IPSEN BIOPHARMACEUTICALS, INC.-2017-10952

PATIENT
  Sex: Female

DRUGS (14)
  1. DYSPORT [Suspect]
     Active Substance: ABOBOTULINUMTOXINA
     Dosage: 300 IU
     Route: 030
     Dates: start: 201706, end: 201706
  2. AMLODIPINE [Concomitant]
     Active Substance: AMLODIPINE BESYLATE
  3. BENZTROPINE. [Concomitant]
     Active Substance: BENZTROPINE
  4. DULOXETINE. [Concomitant]
     Active Substance: DULOXETINE
  5. CELECOXIB. [Concomitant]
     Active Substance: CELECOXIB
  6. METOPROLOL. [Concomitant]
     Active Substance: METOPROLOL
  7. GABAPENTIN. [Concomitant]
     Active Substance: GABAPENTIN
  8. OLANZAPINE. [Concomitant]
     Active Substance: OLANZAPINE
  9. DYSPORT [Suspect]
     Active Substance: ABOBOTULINUMTOXINA
     Indication: TORTICOLLIS
     Dosage: 300 IU
     Route: 030
     Dates: start: 201606, end: 201606
  10. FLUOXETINE [Concomitant]
     Active Substance: FLUOXETINE HYDROCHLORIDE
  11. LOSARTAN/HCT [Concomitant]
     Active Substance: HYDROCHLOROTHIAZIDE\LOSARTAN POTASSIUM
     Dosage: 100/25
  12. PANTOPRAZOLE. [Concomitant]
  13. LEVOTHYROXIN [Concomitant]
     Active Substance: LEVOTHYROXINE
  14. ADVAIR HFA [Concomitant]
     Active Substance: FLUTICASONE PROPIONATE\SALMETEROL XINAFOATE
     Dosage: 100/50

REACTIONS (1)
  - Muscular weakness [Not Recovered/Not Resolved]
